FAERS Safety Report 6315130-7 (Version None)
Quarter: 2009Q3

REPORT INFORMATION
  Report Type: 
  Country: None (occurrence: None)
  Receive Date: 20090819
  Receipt Date: 20090812
  Transmission Date: 20100115
  Serious: Yes (Disabling)
  Sender: FDA-Public Use
  Company Number: US-ASTRAZENECA-2009SE07917

PATIENT
  Age: 78 Year
  Sex: Male

DRUGS (4)
  1. CRESTOR [Suspect]
     Route: 048
     Dates: end: 20090811
  2. COREG [Concomitant]
  3. DIOVAN [Concomitant]
  4. COUMADIN [Concomitant]

REACTIONS (1)
  - NEUROPATHY PERIPHERAL [None]
